FAERS Safety Report 7412870-3 (Version None)
Quarter: 2011Q2

REPORT INFORMATION
  Report Type: 
  Country: None (occurrence: None)
  Receive Date: 20110413
  Receipt Date: 20100127
  Transmission Date: 20111010
  Serious: Yes (Life-Threatening, Other)
  Sender: FDA-Public Use
  Company Number: B0712389A

PATIENT
  Age: 27 Year
  Sex: Female

DRUGS (4)
  1. LAMICTAL [Suspect]
  2. COPAXONE [Concomitant]
     Indication: MULTIPLE SCLEROSIS
     Dosage: 20MG PER DAY
     Route: 058
     Dates: start: 20070714
  3. KEPPRA [Suspect]
     Dosage: 1000MG PER DAY
     Dates: start: 20080611, end: 20090105
  4. LISINOPRIL [Concomitant]
     Dosage: 10MG PER DAY
     Route: 048
     Dates: start: 20030101

REACTIONS (2)
  - SUICIDAL IDEATION [None]
  - COMPULSIONS [None]
